FAERS Safety Report 5632949-6 (Version None)
Quarter: 2008Q1

REPORT INFORMATION
  Report Type: 
  Country: None (occurrence: None)
  Receive Date: 20080214
  Receipt Date: 20080201
  Transmission Date: 20080703
  Serious: Yes (Other)
  Sender: FDA-Public Use
  Company Number: 2008002260

PATIENT
  Sex: Female

DRUGS (1)
  1. PURELL (ETHYL ALCOHOL) [Suspect]
     Dosage: TOPICAL
     Route: 061

REACTIONS (3)
  - BLISTER [None]
  - ERYTHEMA [None]
  - SKIN EXFOLIATION [None]
